FAERS Safety Report 4485864-8 (Version None)
Quarter: 2004Q4

REPORT INFORMATION
  Report Type: 
  Country: None (occurrence: None)
  Receive Date: 20041022
  Receipt Date: 20041019
  Transmission Date: 20050328
  Serious: No
  Sender: FDA-Public Use
  Company Number: TAP2004Q01326

PATIENT
  Age: 86 Year
  Sex: Female

DRUGS (1)
  1. PREVPAC [Suspect]
     Indication: HELICOBACTER INFECTION
     Dosage: 0.5 CARD, 2 IN 1 D, PER ORAL
     Route: 048
     Dates: start: 20041009

REACTIONS (1)
  - DIPLOPIA [None]
